FAERS Safety Report 11473353 (Version 1)
Quarter: 2015Q3

REPORT INFORMATION
  Report Type: Spontaneous
  Country: US (occurrence: US)
  Receive Date: 20150908
  Receipt Date: 20150908
  Transmission Date: 20151125
  Serious: No
  Sender: FDA-Public Use
  Company Number: US-AMEDRA PHARMACEUTICALS LLC-2014AMD00026

PATIENT
  Sex: Female

DRUGS (4)
  1. BLOOD PRESSURE MEDICATIONS [Concomitant]
     Active Substance: UNSPECIFIED INGREDIENT
  2. EPINEPHRINE. [Suspect]
     Active Substance: EPINEPHRINE
     Indication: REACTION TO PRESERVATIVES
     Dosage: 0.3 MG, UNK
     Route: 051
     Dates: start: 20140619, end: 20140619
  3. BIRTH CONTROL PILLS [Concomitant]
     Active Substance: UNSPECIFIED INGREDIENT
  4. NITROFURANTOIN. [Concomitant]
     Active Substance: NITROFURANTOIN

REACTIONS (3)
  - Injection site bruising [Unknown]
  - Drug ineffective [None]
  - Injection site haemorrhage [Unknown]

NARRATIVE: CASE EVENT DATE: 20140619
